FAERS Safety Report 6274012-X (Version None)
Quarter: 2009Q3

REPORT INFORMATION
  Report Type: 
  Country: None (occurrence: None)
  Receive Date: 20090720
  Receipt Date: 20090708
  Transmission Date: 20100115
  Serious: Yes (Other)
  Sender: FDA-Public Use
  Company Number: NL-PFIZER INC-2009237632

PATIENT
  Age: 44 Year

DRUGS (1)
  1. TERRA-CORTRIL [Suspect]
     Indication: POSTOPERATIVE CARE
     Dosage: UNK
     Dates: start: 20090701

REACTIONS (2)
  - FACE OEDEMA [None]
  - RASH PUSTULAR [None]
